FAERS Safety Report 9577069 (Version 1)
Quarter: 2013Q4

REPORT INFORMATION
  Report Type: Spontaneous
  Country: US (occurrence: US)
  Receive Date: 20131001
  Receipt Date: 20131001
  Transmission Date: 20140711
  Serious: No
  Sender: FDA-Public Use
  Company Number: US-AMGEN-USASP2013006512

PATIENT
  Age: 51 Year
  Sex: Female
  Weight: 61.22 kg

DRUGS (4)
  1. ENBREL [Suspect]
     Indication: RHEUMATOID ARTHRITIS
     Dosage: 50 MG/ML, QWK
     Route: 058
  2. FISH OIL [Concomitant]
     Dosage: UNK
  3. VITAMIN D                          /00107901/ [Concomitant]
     Dosage: 1000 UNIT, UNK
  4. VITAMIN B COMPLEX [Concomitant]
     Dosage: UNK

REACTIONS (1)
  - Injection site discomfort [Recovered/Resolved]
